FAERS Safety Report 9474269 (Version 1)
Quarter: 2013Q3

REPORT INFORMATION
  Report Type: Spontaneous
  Country: GB (occurrence: GB)
  Receive Date: 20130823
  Receipt Date: 20130823
  Transmission Date: 20140515
  Serious: Yes (Hospitalization, Disabling, Other)
  Sender: FDA-Public Use
  Company Number: GB-BRISTOL-MYERS SQUIBB COMPANY-19182906

PATIENT
  Age: 78 Year
  Sex: Male

DRUGS (8)
  1. EXENATIDE [Suspect]
     Indication: TYPE 2 DIABETES MELLITUS
     Route: 058
  2. SIMVASTATIN [Concomitant]
  3. GLICLAZIDE [Concomitant]
  4. METFORMIN [Concomitant]
  5. FEXOFENADINE HCL [Concomitant]
  6. GALANTAMINE HYDROBROMIDE [Concomitant]
  7. INSULIN [Concomitant]
  8. PARACETAMOL [Concomitant]

REACTIONS (2)
  - Pancreatitis [Unknown]
  - Pancreatic carcinoma [Unknown]
